FAERS Safety Report 9706956 (Version 1)
Quarter: 2013Q4

REPORT INFORMATION
  Report Type: Spontaneous
  Country: US (occurrence: US)
  Receive Date: 20131125
  Receipt Date: 20131125
  Transmission Date: 20140711
  Serious: No
  Sender: FDA-Public Use
  Company Number: US-PFIZER INC-2013331171

PATIENT
  Age: 76 Year
  Sex: Male

DRUGS (18)
  1. TOVIAZ [Suspect]
     Indication: URINARY INCONTINENCE
     Dosage: 8 MG, DAILY, 24HR (QD)
     Route: 048
     Dates: start: 20130124
  2. CORDARONE [Concomitant]
     Dosage: 200 MG, AS DIRECTED
     Route: 048
     Dates: start: 20111025
  3. ASPIR-81 [Concomitant]
     Dosage: 81 MG, AS DIRECTED
     Route: 048
     Dates: start: 20111025
  4. COREG [Concomitant]
     Dosage: 12.5 MG, AS DIRECTED
     Route: 048
     Dates: start: 20111025
  5. CENTRUM SILVER [Concomitant]
     Dosage: QD ORAL AS DIRECTED
     Route: 048
     Dates: start: 20111025
  6. CELEXA [Concomitant]
     Dosage: QD ORAL AS DIRECTED
     Route: 048
     Dates: start: 20111025
  7. PLAVIX [Concomitant]
     Dosage: QD ORAL AS DIRECTED
     Route: 048
     Dates: start: 20111025
  8. FLEXERIL [Concomitant]
     Dosage: 10 MG, AS DIRECTED
     Route: 048
     Dates: start: 20111025
  9. STOOL SOFTENER [Concomitant]
     Dosage: 100 MG, AS DIRECTED
     Route: 048
     Dates: start: 20111025
  10. SINEMET [Concomitant]
     Dosage: 50-200 MG TABLET ER, AS DIRECTED
     Route: 048
     Dates: start: 20111025
  11. ZOCOR [Concomitant]
     Dosage: 20 MG, AS DIRECTED
     Route: 048
     Dates: start: 20111103
  12. LASIX [Concomitant]
     Dosage: 40 MG, AS DIRECTED
     Route: 048
     Dates: start: 20121106
  13. VOLTAREN [Concomitant]
     Dosage: 1 % GEL, AS DIRECTED
     Route: 062
     Dates: start: 20121106
  14. LORTAB [Concomitant]
     Dosage: 10-500 MG TABLET, AS DIRECTED
     Route: 048
     Dates: start: 20121106
  15. COZAAR [Concomitant]
     Dosage: 25 MG, AS DIRECTED
     Route: 048
     Dates: start: 20121106
  16. NITROQUICK [Concomitant]
     Dosage: 0.4 MG, UNK
     Dates: start: 20090225
  17. MIRAPEX [Concomitant]
     Dosage: 1 MG, UNK
     Route: 048
  18. KLONOPIN [Concomitant]
     Dosage: 0.5 MG, AS DIRECTED
     Route: 048
     Dates: start: 20121106

REACTIONS (1)
  - Drug ineffective [Unknown]
